FAERS Safety Report 15801647 (Version 3)
Quarter: 2019Q1

REPORT INFORMATION
  Report Type: Spontaneous
  Country: US (occurrence: US)
  Receive Date: 20190109
  Receipt Date: 20190125
  Transmission Date: 20190417
  Serious: No
  Sender: FDA-Public Use
  Company Number: US-PFIZER INC-2019002173

PATIENT
  Age: 50 Year
  Sex: Male
  Weight: 106 kg

DRUGS (1)
  1. VIAGRA [Suspect]
     Active Substance: SILDENAFIL CITRATE
     Dosage: 25 MG, UNK
     Route: 048
     Dates: start: 201805

REACTIONS (4)
  - Erection increased [Not Recovered/Not Resolved]
  - Ejaculation disorder [Not Recovered/Not Resolved]
  - Suspected counterfeit product [Unknown]
  - Ejaculation disorder [Recovering/Resolving]

NARRATIVE: CASE EVENT DATE: 2018
